FAERS Safety Report 11654820 (Version 1)
Quarter: 2015Q4

REPORT INFORMATION
  Report Type: Spontaneous
  Country: US (occurrence: None)
  Receive Date: 20151022
  Receipt Date: 20151022
  Transmission Date: 20160304
  Serious: Yes (Other)
  Sender: FDA-Public Use
  Company Number: None

PATIENT
  Age: 65 Year
  Sex: Male
  Weight: 112 kg

DRUGS (16)
  1. DUONEB [Concomitant]
     Active Substance: ALBUTEROL SULFATE\IPRATROPIUM BROMIDE
  2. NYSTATIN CREAM [Concomitant]
     Active Substance: NYSTATIN
  3. PANTOPRAZOLE [Concomitant]
     Active Substance: PANTOPRAZOLE SODIUM
  4. TIOTROPIUM [Concomitant]
     Active Substance: TIOTROPIUM
  5. XARELTO [Suspect]
     Active Substance: RIVAROXABAN
     Indication: ATRIAL FIBRILLATION
     Route: 048
     Dates: start: 20150917, end: 20150919
  6. INSULIN LISPRO [Concomitant]
     Active Substance: INSULIN LISPRO
  7. LEXAPRO [Concomitant]
     Active Substance: ESCITALOPRAM OXALATE
  8. ATORVASTATIN [Concomitant]
     Active Substance: ATORVASTATIN
  9. CENTRUM [Concomitant]
     Active Substance: VITAMINS
  10. KCL [Concomitant]
     Active Substance: POTASSIUM CHLORIDE
  11. ACETAMINOPHEN. [Concomitant]
     Active Substance: ACETAMINOPHEN
  12. ALBUTEROL. [Concomitant]
     Active Substance: ALBUTEROL
  13. ASPIRIN. [Concomitant]
     Active Substance: ASPIRIN
  14. CARVEDILOL. [Concomitant]
     Active Substance: CARVEDILOL
  15. PLAXIS [Concomitant]
  16. LISINOPRIL. [Concomitant]
     Active Substance: LISINOPRIL

REACTIONS (1)
  - Rash morbilliform [None]

NARRATIVE: CASE EVENT DATE: 20150919
